FAERS Safety Report 7520055-5 (Version None)
Quarter: 2011Q2

REPORT INFORMATION
  Report Type: 
  Country: None (occurrence: None)
  Receive Date: 20110602
  Receipt Date: 20110527
  Transmission Date: 20111010
  Serious: Yes (Other)
  Sender: FDA-Public Use
  Company Number: CHPA2011US07312

PATIENT
  Age: 75 Year
  Sex: Male
  Weight: 70.295 kg

DRUGS (1)
  1. PREVACID 24 HR [Suspect]
     Indication: BARRETT'S OESOPHAGUS
     Dosage: 15 MG, QD
     Route: 048

REACTIONS (3)
  - INCORRECT DRUG ADMINISTRATION DURATION [None]
  - ARRHYTHMIA [None]
  - OFF LABEL USE [None]
